FAERS Safety Report 17912538 (Version 1)
Quarter: 2020Q2

REPORT INFORMATION
  Report Type: Spontaneous
  Country: IL (occurrence: IL)
  Receive Date: 20200618
  Receipt Date: 20200618
  Transmission Date: 20200714
  Serious: Yes (Other)
  Sender: FDA-Public Use
  Company Number: IL-SEBELA IRELAND LIMITED-2020SEB00066

PATIENT
  Age: 32 Year
  Sex: Female

DRUGS (1)
  1. AZATHIOPRINE. [Suspect]
     Active Substance: AZATHIOPRINE
     Indication: CROHN^S DISEASE
     Dosage: 125 MG, 1X/DAY
     Route: 065

REACTIONS (1)
  - Cholestasis of pregnancy [Recovered/Resolved]
